FAERS Safety Report 20092172 (Version 1)
Quarter: 2021Q4

REPORT INFORMATION
  Report Type: Spontaneous
  Country: US (occurrence: None)
  Receive Date: 20211119
  Receipt Date: 20211119
  Transmission Date: 20220303
  Serious: Yes (Death, Hospitalization)
  Sender: FDA-Public Use
  Company Number: None

PATIENT
  Age: 64 Year
  Sex: Male
  Weight: 95.1 kg

DRUGS (17)
  1. BARICITINIB [Suspect]
     Active Substance: BARICITINIB
     Indication: COVID-19
     Dosage: FREQUENCY : DAILY;?
     Route: 048
     Dates: start: 20211013, end: 20211024
  2. DEXAMETHASONE [Concomitant]
     Active Substance: DEXAMETHASONE
  3. REMDESIVIR [Concomitant]
     Active Substance: REMDESIVIR
  4. ENOXAPARIN [Concomitant]
     Active Substance: ENOXAPARIN
  5. INSULIN LISPRO [Concomitant]
     Active Substance: INSULIN LISPRO
  6. MICAFUNGIN [Concomitant]
     Active Substance: MICAFUNGIN
  7. NYSTATIN [Concomitant]
     Active Substance: NYSTATIN
  8. PANTOPRAZOLE [Concomitant]
     Active Substance: PANTOPRAZOLE
  9. PIPERACILLIN SODIUM\TAZOBACTAM SODIUM [Concomitant]
     Active Substance: PIPERACILLIN SODIUM\TAZOBACTAM SODIUM
  10. senna/docusate [Concomitant]
  11. DEXMEDETOMIDINE [Concomitant]
     Active Substance: DEXMEDETOMIDINE
  12. FENTANYL [Concomitant]
     Active Substance: FENTANYL
  13. PROPOFOL [Concomitant]
     Active Substance: PROPOFOL
  14. BISACODYL [Concomitant]
     Active Substance: BISACODYL
  15. GABAPENTIN [Concomitant]
     Active Substance: GABAPENTIN
  16. METRONIDAZOLE [Concomitant]
     Active Substance: METRONIDAZOLE
  17. FAMOTIDINE [Concomitant]
     Active Substance: FAMOTIDINE

REACTIONS (5)
  - Abdominal pain [None]
  - Abscess [None]
  - Tachypnoea [None]
  - Hypoxia [None]
  - Diverticulitis intestinal perforated [None]

NARRATIVE: CASE EVENT DATE: 20211017
